FAERS Safety Report 7333406-1 (Version None)
Quarter: 2011Q1

REPORT INFORMATION
  Report Type: 
  Country: None (occurrence: None)
  Receive Date: 20110224
  Receipt Date: 20110215
  Transmission Date: 20110831
  Serious: Yes (Other)
  Sender: FDA-Public Use
  Company Number: 2011SP007526

PATIENT
  Age: 59 Year
  Sex: Female

DRUGS (7)
  1. CELESTONE [Suspect]
     Indication: SCIATICA
     Dosage: 2 MG; BID
     Dates: start: 20110127, end: 20110205
  2. CRESTOR [Concomitant]
  3. KLIPAL CODEINE [Concomitant]
  4. PROZAC [Concomitant]
  5. MYOLASTAN [Concomitant]
  6. ALPRAZOLAM [Concomitant]
  7. SYMBICORT [Concomitant]

REACTIONS (10)
  - INCREASED APPETITE [None]
  - PSYCHOMOTOR HYPERACTIVITY [None]
  - OEDEMA PERIPHERAL [None]
  - TREMOR [None]
  - FEELING HOT [None]
  - PERIPHERAL COLDNESS [None]
  - RASH [None]
  - DYSKINESIA [None]
  - APHASIA [None]
  - CONFUSIONAL STATE [None]
